FAERS Safety Report 9226219 (Version 1)
Quarter: 2013Q2

REPORT INFORMATION
  Report Type: Spontaneous
  Country: US (occurrence: US)
  Receive Date: 20130411
  Receipt Date: 20130411
  Transmission Date: 20140414
  Serious: Yes (Other)
  Sender: FDA-Public Use
  Company Number: US-COVIDIEN/TYCO HEALTHCARE/MALLINCKRODT-T201301626

PATIENT
  Age: 48 Year
  Sex: Male

DRUGS (4)
  1. EXALGO EXTENDED RELEASE [Suspect]
     Indication: PAIN
     Dosage: 32 MG, QD
     Route: 048
     Dates: start: 201302, end: 20130326
  2. EXALGO EXTENDED RELEASE [Suspect]
     Dosage: 16 MG, QD
     Route: 048
     Dates: start: 20130327, end: 20130328
  3. EXALGO EXTENDED RELEASE [Suspect]
     Dosage: 8 MG, QD
     Route: 048
     Dates: start: 20130329, end: 20130330
  4. DILAUDID [Concomitant]
     Indication: BREAKTHROUGH PAIN
     Dosage: 2-4 MG, Q 4-6 HOURS
     Dates: end: 20130331

REACTIONS (2)
  - Drug withdrawal syndrome [Recovered/Resolved]
  - Formication [Recovered/Resolved]
